FAERS Safety Report 5208270-7 (Version None)
Quarter: 2006Q4

REPORT INFORMATION
  Report Type: 
  Country: None (occurrence: None)
  Receive Date: 20061027
  Receipt Date: 20060421
  Transmission Date: 20070319
  Serious: Yes (Other)
  Sender: FDA-Public Use
  Company Number: HQWYE936924APR06

PATIENT
  Age: 57 Year
  Sex: Female
  Weight: 54.48 kg

DRUGS (3)
  1. PREMARIN [Suspect]
     Indication: HORMONE REPLACEMENT THERAPY
     Dosage: 0.3 + 0.625 MG 1X PER 1 DAY ORAL - SEE IMAGE
     Route: 048
     Dates: start: 19910101, end: 20051101
  2. PREMARIN [Suspect]
     Indication: HORMONE REPLACEMENT THERAPY
     Dosage: 0.3 + 0.625 MG 1X PER 1 DAY ORAL - SEE IMAGE
     Route: 048
     Dates: start: 20051101, end: 20051201
  3. SYNTHROID [Concomitant]

REACTIONS (1)
  - CHOREA [None]
